FAERS Safety Report 8974839 (Version 1)
Quarter: 2012Q4

REPORT INFORMATION
  Report Type: 
  Country: CN (occurrence: CN)
  Receive Date: 20121219
  Receipt Date: 20121219
  Transmission Date: 20130627
  Serious: Yes (Other)
  Sender: FDA-Public Use
  Company Number: PHHY2012CN107295

PATIENT
  Age: 32 Year
  Sex: Male
  Weight: 59 kg

DRUGS (1)
  1. SEBIVO [Suspect]
     Indication: HEPATITIS B
     Dosage: 0.6 g, QD
     Route: 048
     Dates: start: 20071201, end: 20081221

REACTIONS (8)
  - Cardiac enzymes increased [Recovered/Resolved]
  - Asthma [Unknown]
  - Pain in extremity [Unknown]
  - Gait disturbance [Unknown]
  - Dysstasia [Unknown]
  - Hypoaesthesia [Unknown]
  - Asthenia [Recovered/Resolved]
  - Fatigue [Unknown]
